FAERS Safety Report 23596088 (Version 1)
Quarter: 2024Q1

REPORT INFORMATION
  Report Type: Spontaneous
  Country: US (occurrence: US)
  Receive Date: 20240305
  Receipt Date: 20240305
  Transmission Date: 20240410
  Serious: Yes (Hospitalization)
  Sender: FDA-Public Use
  Company Number: US-E2BLSMVVAL-SPO/USA/24/0003679

PATIENT
  Age: 44 Year
  Sex: Female

DRUGS (3)
  1. CLOZAPINE [Suspect]
     Active Substance: CLOZAPINE
     Indication: Product used for unknown indication
     Dosage: AT BEDTIME
     Dates: start: 20211101
  2. VITAMIN B12 [Concomitant]
     Active Substance: CYANOCOBALAMIN
  3. IRON [Concomitant]
     Active Substance: IRON

REACTIONS (2)
  - Hospitalisation [Unknown]
  - Therapy interrupted [Unknown]
